FAERS Safety Report 9360737 (Version 3)
Quarter: 2013Q3

REPORT INFORMATION
  Report Type: Spontaneous
  Country: GB (occurrence: None)
  Receive Date: 20130618
  Receipt Date: 20130709
  Transmission Date: 20140515
  Serious: Yes (Life-Threatening, Hospitalization)
  Sender: FDA-Public Use
  Company Number: 1745166

PATIENT
  Age: 57 Year
  Sex: Female

DRUGS (15)
  1. VINCRISTINE SULFATE [Suspect]
     Indication: DIFFUSE LARGE B-CELL LYMPHOMA
  2. DOXORUBICIN HYDROCHLORIDE [Suspect]
     Indication: DIFFUSE LARGE B-CELL LYMPHOMA
  3. RITUXIMAB [Suspect]
     Indication: DIFFUSE LARGE B-CELL LYMPHOMA
     Dosage: 850, ONCE, UNK, INTRAVENOUS
     Route: 042
     Dates: start: 20130321, end: 20130321
  4. CYCLOPHOSPHAMIDE [Suspect]
     Indication: DIFFUSE LARGE B-CELL LYMPHOMA
  5. PREDNISONE [Suspect]
     Indication: DIFFUSE LARGE B-CELL LYMPHOMA
  6. METFORMIN HYDROCHLORIDE [Concomitant]
  7. SIMVASTATIN [Concomitant]
  8. BISOPROLOL [Concomitant]
  9. BENDROFLUMETHIAZIDE [Concomitant]
  10. LACIDIPINE [Concomitant]
  11. OMEPRAZOLE [Concomitant]
  12. FLUTICASONE PROPIONATE W/SALMETEROL XINAFOATE [Concomitant]
  13. PREDNISOLONE [Concomitant]
  14. PARACETAMOL [Concomitant]
  15. CHLORPHENIRAMINE MALEATE [Concomitant]

REACTIONS (13)
  - Infusion related reaction [None]
  - Hypoxia [None]
  - Tachycardia [None]
  - Flushing [None]
  - Dyspnoea [None]
  - Body temperature decreased [None]
  - Blood pressure systolic increased [None]
  - White blood cell count increased [None]
  - Neutrophil count increased [None]
  - Lymphocyte count increased [None]
  - Blood uric acid increased [None]
  - Blood urea increased [None]
  - Muscular weakness [None]
